FAERS Safety Report 16709135 (Version 1)
Quarter: 2019Q3

REPORT INFORMATION
  Report Type: Other
  Country: DE (occurrence: DE)
  Receive Date: 20190816
  Receipt Date: 20190816
  Transmission Date: 20191004
  Serious: Yes (Hospitalization)
  Sender: FDA-Public Use
  Company Number: DE-GUARDIAN DRUG COMPANY-2073235

PATIENT
  Age: 81 Year
  Sex: Male

DRUGS (5)
  1. CHILDRENS IBUPROFEN [Suspect]
     Active Substance: IBUPROFEN
     Indication: PAIN
     Route: 065
  2. ASPIRIN. [Interacting]
     Active Substance: ASPIRIN
     Route: 065
  3. LEVODOPA/ UNSPECIFIED DDI (UNSPECIFIED DECARBOXYLASE INHIBITOR) [Concomitant]
     Route: 065
  4. DICLOFENAC SODIUM. [Interacting]
     Active Substance: DICLOFENAC SODIUM
     Route: 065
  5. PHENPROCOUMON [Interacting]
     Active Substance: PHENPROCOUMON
     Route: 065

REACTIONS (4)
  - Drug interaction [Unknown]
  - Fall [Unknown]
  - Haemorrhage intracranial [Unknown]
  - Coma [Unknown]
